FAERS Safety Report 5864273-0 (Version None)
Quarter: 2008Q3

REPORT INFORMATION
  Report Type: 
  Country: None (occurrence: None)
  Receive Date: 20080829
  Receipt Date: 20080826
  Transmission Date: 20090109
  Serious: Yes (Other)
  Sender: FDA-Public Use
  Company Number: US-ASTRAZENECA-2008UW17443

PATIENT
  Age: 75 Year
  Sex: Male
  Weight: 72.6 kg

DRUGS (5)
  1. CRESTOR [Suspect]
     Indication: BLOOD CHOLESTEROL INCREASED
     Route: 048
  2. LIPITOR [Suspect]
     Indication: BLOOD CHOLESTEROL INCREASED
     Route: 048
  3. LIPITOR [Suspect]
     Route: 048
     Dates: start: 20080101
  4. TOPROL-XL [Concomitant]
     Route: 048
  5. ALTACE [Concomitant]

REACTIONS (2)
  - LIVER INJURY [None]
  - MYALGIA [None]
